FAERS Safety Report 15227202 (Version 1)
Quarter: 2018Q3

REPORT INFORMATION
  Report Type: Spontaneous
  Country: US (occurrence: US)
  Receive Date: 20180801
  Receipt Date: 20180801
  Transmission Date: 20181010
  Serious: No
  Sender: FDA-Public Use
  Company Number: US-BAUSCH-BL-2018-020659

PATIENT
  Age: 58 Year
  Sex: Male

DRUGS (3)
  1. XIFAXAN [Suspect]
     Active Substance: RIFAXIMIN
     Indication: OFF LABEL USE
  2. XIFAXAN [Suspect]
     Active Substance: RIFAXIMIN
     Indication: GASTROINTESTINAL BACTERIAL OVERGROWTH
     Route: 048
     Dates: start: 20180719
  3. RANITIDINE. [Concomitant]
     Active Substance: RANITIDINE
     Indication: PRODUCT USED FOR UNKNOWN INDICATION

REACTIONS (2)
  - Off label use [Not Recovered/Not Resolved]
  - Urine abnormality [Recovering/Resolving]

NARRATIVE: CASE EVENT DATE: 20180719
